FAERS Safety Report 20933103 (Version 4)
Quarter: 2024Q3

REPORT INFORMATION
  Report Type: Report from Study
  Country: CO (occurrence: CO)
  Receive Date: 20220608
  Receipt Date: 20240715
  Transmission Date: 20241017
  Serious: Yes (Hospitalization)
  Sender: INCYTE
  Company Number: CO-002147023-NVSC2021CO163130

PATIENT

DRUGS (2)
  1. RUXOLITINIB [Suspect]
     Active Substance: RUXOLITINIB
     Indication: Myelofibrosis
     Dosage: UNK
     Route: 048
  2. RUXOLITINIB [Suspect]
     Active Substance: RUXOLITINIB
     Dosage: 5 MG, Q12H
     Route: 048
     Dates: start: 20201110

REACTIONS (4)
  - Diarrhoea [Not Recovered/Not Resolved]
  - Pyrexia [Unknown]
  - Illness [Unknown]
  - Malaise [Unknown]
